FAERS Safety Report 15844489 (Version 5)
Quarter: 2019Q2

REPORT INFORMATION
  Report Type: Spontaneous
  Country: US (occurrence: US)
  Receive Date: 20190118
  Receipt Date: 20190611
  Transmission Date: 20190711
  Serious: Yes (Hospitalization)
  Sender: FDA-Public Use
  Company Number: US-ACTELION-A-US2019-184702

PATIENT
  Sex: Female
  Weight: 65.31 kg

DRUGS (5)
  1. REMODULIN [Concomitant]
     Active Substance: TREPROSTINIL
     Dosage: 24 NG/KG, PER MIN
  2. UPTRAVI [Suspect]
     Active Substance: SELEXIPAG
     Indication: PULMONARY ARTERIAL HYPERTENSION
     Dosage: 1000 MCG, BID
     Route: 048
  3. LETAIRIS [Concomitant]
     Active Substance: AMBRISENTAN
  4. ADEMPAS [Concomitant]
     Active Substance: RIOCIGUAT
  5. COUMADIN [Concomitant]
     Active Substance: WARFARIN SODIUM

REACTIONS (14)
  - Feeling jittery [Not Recovered/Not Resolved]
  - Decreased appetite [Unknown]
  - Ventricular tachycardia [Unknown]
  - Weight decreased [Unknown]
  - Pain in jaw [Unknown]
  - Disease progression [Not Recovered/Not Resolved]
  - Pain [Unknown]
  - Pulmonary arterial hypertension [Not Recovered/Not Resolved]
  - Dyspnoea [Not Recovered/Not Resolved]
  - Fatigue [Not Recovered/Not Resolved]
  - Therapy non-responder [Unknown]
  - Insomnia [Not Recovered/Not Resolved]
  - Therapy change [Unknown]
  - Myalgia [Unknown]
